FAERS Safety Report 9523252 (Version 4)
Quarter: 2014Q1

REPORT INFORMATION
  Report Type: Report from Study
  Country: US (occurrence: US)
  Receive Date: 20130913
  Receipt Date: 20140331
  Transmission Date: 20141002
  Serious: Yes (Hospitalization, Other)
  Sender: FDA-Public Use
  Company Number: PHEH2013US019117

PATIENT
  Age: 72 Year
  Sex: Male
  Weight: 78.5 kg

DRUGS (2)
  1. GILENYA [Suspect]
     Indication: MULTIPLE SCLEROSIS
     Dosage: 0.5 MG, QD
     Route: 048
     Dates: start: 20110121, end: 20140321
  2. TYLENOL [Concomitant]
     Indication: PAIN

REACTIONS (5)
  - Prostatomegaly [Recovering/Resolving]
  - Dysuria [Recovering/Resolving]
  - Coagulation time prolonged [Recovering/Resolving]
  - Brain neoplasm [Recovering/Resolving]
  - Malignant melanoma [Unknown]
